FAERS Safety Report 15886234 (Version 2)
Quarter: 2019Q1

REPORT INFORMATION
  Report Type: Spontaneous
  Country: US (occurrence: US)
  Receive Date: 20190129
  Receipt Date: 20190313
  Transmission Date: 20190417
  Serious: Yes (Death)
  Sender: FDA-Public Use
  Company Number: US-WELLSTAT THERAPEUTICS CORPORATION-2061887

PATIENT
  Age: 78 Year
  Sex: Male

DRUGS (2)
  1. VISTOGARD [Suspect]
     Active Substance: URIDINE TRIACETATE
     Indication: CHEMOTHERAPY TOXICITY ATTENUATION
     Route: 050
     Dates: start: 20181206, end: 20181210
  2. CAPECITABINE. [Concomitant]
     Active Substance: CAPECITABINE
     Dates: start: 20181117, end: 20181126

REACTIONS (1)
  - Respiratory failure [Fatal]

NARRATIVE: CASE EVENT DATE: 20181212
